FAERS Safety Report 10538022 (Version 2)
Quarter: 2014Q4

REPORT INFORMATION
  Report Type: Spontaneous
  Country: US (occurrence: US)
  Receive Date: 20141023
  Receipt Date: 20141023
  Transmission Date: 20150529
  Serious: No
  Sender: FDA-Public Use
  Company Number: US-ENDO PHARMACEUTICALS INC.-AMIT20130032

PATIENT
  Age: 12 Year
  Sex: Male

DRUGS (1)
  1. AMITRIPTYLINE HCL 10MG [Suspect]
     Active Substance: AMITRIPTYLINE
     Indication: MIGRAINE PROPHYLAXIS
     Route: 048
     Dates: start: 20131118

REACTIONS (1)
  - Abdominal pain upper [Recovering/Resolving]

NARRATIVE: CASE EVENT DATE: 20131103
